FAERS Safety Report 20655430 (Version 7)
Quarter: 2022Q4

REPORT INFORMATION
  Report Type: Spontaneous
  Country: CA (occurrence: CA)
  Receive Date: 20220330
  Receipt Date: 20221229
  Transmission Date: 20230113
  Serious: Yes (Other)
  Sender: FDA-Public Use
  Company Number: CA-ANIPHARMA-2021-CA-001646

PATIENT
  Age: 41 Year
  Sex: Female

DRUGS (75)
  1. PROPRANOLOL HYDROCHLORIDE [Suspect]
     Active Substance: PROPRANOLOL HYDROCHLORIDE
     Indication: Migraine
     Dosage: 40 MILLIGRAM; 80 MILLIGRAM Q6MONTHS; 80 MILLIGRAM (JAN-2020 / JAN-2021)
     Route: 065
  2. RIZATRIPTAN BENZOATE [Suspect]
     Active Substance: RIZATRIPTAN BENZOATE
     Dosage: 10 MILLIGRAM, QD/ 1 DOSAGE FORM
     Route: 065
  3. SUMATRIPTAN SUCCINATE [Suspect]
     Active Substance: SUMATRIPTAN SUCCINATE
     Dosage: 100 MILLIGRAM; UNKNOWN DOSE; 60 MG; 10 MG
     Route: 065
  4. LANSOPRAZOLE [Suspect]
     Active Substance: LANSOPRAZOLE
     Dosage: 30 MILLIGRAM
     Route: 065
  5. VENLAFAXINE HCL [Suspect]
     Active Substance: VENLAFAXINE HYDROCHLORIDE
     Dosage: 75 MILLIGRAM / 150 MILLIGRAM (JAN-2016 / MAR-2021)
     Route: 065
  6. BOTULINUM TOXIN TYPE A [Suspect]
     Active Substance: BOTULINUM TOXIN TYPE A
     Dosage: UNKNOWN DOSE; 200 INTERNATIONAL UNITS (APR-2018 / MAR-2021); 200 IU, 4 YEARS
     Route: 065
  7. DEXAMETHASONE [Suspect]
     Active Substance: DEXAMETHASONE
     Dosage: 1 DOSAGE FORM; 2 MG; 1 DF, 1X/DAY
     Route: 065
  8. ELAVIL [Concomitant]
     Active Substance: AMITRIPTYLINE HYDROCHLORIDE
     Route: 065
  9. FERROUS FUMARATE [Concomitant]
     Active Substance: FERROUS FUMARATE
     Route: 065
  10. FLUOXETINE [Concomitant]
     Active Substance: FLUOXETINE HYDROCHLORIDE
     Route: 065
  11. SERTRALINE HYDROCHLORIDE [Suspect]
     Active Substance: SERTRALINE HYDROCHLORIDE
     Dosage: 50 MILLIGRAM
     Route: 065
  12. POLYETHYLENE GLYCOLS [Concomitant]
     Active Substance: POLYETHYLENE GLYCOLS
     Route: 065
  13. METRONIDAZOLE [Concomitant]
     Active Substance: METRONIDAZOLE
     Route: 065
  14. NITROFURANTOIN [Concomitant]
     Active Substance: NITROFURANTOIN
     Route: 065
  15. ZOPICLONE [Suspect]
     Active Substance: ZOPICLONE
     Dosage: 5 MILLIGRAM; 1 DOSAGE FORM 1X/DAY
     Route: 065
  16. AMOXICILLIN [Suspect]
     Active Substance: AMOXICILLIN
     Dosage: 2 DOSAGE FORM, TID; UNKNOWN
     Route: 065
  17. FLUCONAZOLE [Suspect]
     Active Substance: FLUCONAZOLE
     Dosage: 1 DOSAGE FORM; UNKNOWN
     Route: 065
  18. HYDROMORPHONE HYDROCHLORIDE [Suspect]
     Active Substance: HYDROMORPHONE HYDROCHLORIDE
     Dosage: 1 DOSAGE FORM, BID; UNKNOWN
     Route: 065
  19. CODEINE [Suspect]
     Active Substance: CODEINE
     Dosage: 40 MG; UNKNOWN
     Route: 065
  20. INDOMETHACIN [Suspect]
     Active Substance: INDOMETHACIN
     Dosage: 1 DOSAGE FORM, BID; 1 DF, 1X/DAY (45 DAYS)
     Route: 054
  21. CIPROFLOXACIN [Suspect]
     Active Substance: CIPROFLOXACIN
     Dosage: 500 MILLIGRAM; 1 DOSAGE FORM, BID; 1DF, 1X/DAY; 1 DOSAGE FORM, QOD; 2 DF, 1X/DAY, UNKNOWN
     Route: 065
  22. DULOXETINE [Suspect]
     Active Substance: DULOXETINE
     Dosage: 60 MILLIGRAM; UNKNOWN DOSE
     Route: 065
  23. ALBUTEROL SULFATE [Suspect]
     Active Substance: ALBUTEROL SULFATE
     Dosage: UNKNOWN DOSE; 1 DOSAGE FORM EVERY DAY
     Route: 065
  24. CLARITHROMYCIN [Suspect]
     Active Substance: CLARITHROMYCIN
     Dosage: 1 DOSAGE FORM, BID; 1 DF
     Route: 065
  25. TRIMETHOPRIM [Suspect]
     Active Substance: TRIMETHOPRIM
     Route: 065
  26. MOMETASONE FUROATE [Suspect]
     Active Substance: MOMETASONE FUROATE
     Dosage: 2 DF, 2X/DAY RESP INHALATION; 2 DOSAGE FORM, TID
     Route: 065
  27. ACETAMINOPHEN\BUTYLSCOPOLAMINE BROMIDE [Suspect]
     Active Substance: ACETAMINOPHEN\BUTYLSCOPOLAMINE BROMIDE
     Dosage: 10 MILLIGRAM
     Route: 065
  28. TRAMADOL [Suspect]
     Active Substance: TRAMADOL
     Dosage: UNKNOWN
     Route: 065
  29. ACETAMINOPHEN [Suspect]
     Active Substance: ACETAMINOPHEN
     Route: 065
  30. RABEPRAZOLE SODIUM [Suspect]
     Active Substance: RABEPRAZOLE SODIUM
     Dosage: 1 DOSAGE FORM, BID
     Route: 065
  31. TOPIRAMATE [Suspect]
     Active Substance: TOPIRAMATE
     Dosage: 25 MILLIGRAM
     Route: 065
  32. ACETAMINOPHEN\TRAMADOL HYDROCHLORIDE [Concomitant]
     Active Substance: ACETAMINOPHEN\TRAMADOL HYDROCHLORIDE
     Route: 065
  33. VENLAFAXINE HYDROCHLORIDE [Concomitant]
     Active Substance: VENLAFAXINE HYDROCHLORIDE
     Route: 065
  34. ACETAMINOPHEN\CODEINE PHOSPHATE [Concomitant]
     Active Substance: ACETAMINOPHEN\CODEINE PHOSPHATE
     Route: 065
  35. FLUTICASONE [Concomitant]
     Active Substance: FLUTICASONE
     Route: 065
  36. AMOXICILLIN TRIHYDRATE [Concomitant]
     Active Substance: AMOXICILLIN
     Route: 065
  37. DEXAMETHASONE SODIUM SUCCINATE [Concomitant]
     Active Substance: DEXAMETHASONE SODIUM SUCCINATE
     Route: 065
  38. LISINOPRIL [Concomitant]
     Active Substance: LISINOPRIL
     Route: 065
  39. PREDNISONE [Concomitant]
     Active Substance: PREDNISONE
     Route: 065
  40. CEFUROXIME AXETIL [Concomitant]
     Active Substance: CEFUROXIME AXETIL
     Route: 065
  41. ESOMEPRAZOLE MAGNESIUM [Suspect]
     Active Substance: ESOMEPRAZOLE MAGNESIUM
     Dosage: 40 MILLIGRAM
     Route: 065
  42. CEPHALEXIN [Concomitant]
     Active Substance: CEPHALEXIN
     Route: 065
  43. DANAZOL [Concomitant]
     Active Substance: DANAZOL
     Route: 065
  44. CYMBALTA [Concomitant]
     Active Substance: DULOXETINE HYDROCHLORIDE
     Route: 065
  45. NASONEX [Concomitant]
     Active Substance: MOMETASONE FUROATE
     Route: 065
  46. FROVA [Concomitant]
     Active Substance: FROVATRIPTAN SUCCINATE
     Route: 065
  47. MACROBID [Concomitant]
     Active Substance: NITROFURANTOIN\NITROFURANTOIN MONOHYDRATE
     Route: 065
  48. METOCLOPRAMIDE [Concomitant]
     Active Substance: METOCLOPRAMIDE
     Route: 065
  49. MORPHINE SULFATE [Concomitant]
     Active Substance: MORPHINE SULFATE
     Route: 065
  50. NAPROXEN [Concomitant]
     Active Substance: NAPROXEN
     Route: 065
  51. OSELTAMIVIR [Concomitant]
     Active Substance: OSELTAMIVIR
     Route: 065
  52. ESCITALOPRAM [Suspect]
     Active Substance: ESCITALOPRAM OXALATE
     Dosage: 10 MILLIGRAM
     Route: 065
  53. PANTOPRAZOLE SODIUM [Concomitant]
     Active Substance: PANTOPRAZOLE SODIUM
     Route: 065
  54. AZITHROMYCIN [Suspect]
     Active Substance: AZITHROMYCIN
     Dosage: 500 MG, UNKNOWN
     Route: 065
  55. SULFATRIM [Concomitant]
     Active Substance: SULFAMETHOXAZOLE\TRIMETHOPRIM
     Route: 065
  56. LISINOPRIL [Concomitant]
     Active Substance: LISINOPRIL
     Route: 065
  57. APO-SALVENT CFC FREE [Concomitant]
     Route: 065
  58. AZITHROMYCIN DIHYDRATE [Concomitant]
     Active Substance: AZITHROMYCIN DIHYDRATE
     Route: 065
  59. LISINOPRIL [Suspect]
     Active Substance: LISINOPRIL
     Dosage: 1 DF, 1X/DAY (152 DAYS); 1 DF, 1X/DAY (54 DAYS); UNKNOWN
     Route: 065
  60. ACETAMINOPHEN [Suspect]
     Active Substance: ACETAMINOPHEN
     Route: 065
  61. DULOXETINE [Suspect]
     Active Substance: DULOXETINE
     Dosage: 60 MILLIGRAM
     Route: 065
  62. CLOTRIMAZOLE\FLUCONAZOLE [Suspect]
     Active Substance: CLOTRIMAZOLE\FLUCONAZOLE
     Dosage: 1 DOSAGE FORM
     Route: 065
  63. MAXALT [Suspect]
     Active Substance: RIZATRIPTAN BENZOATE
     Dosage: 1 DF; 10 MG, 1X/DAY
     Route: 065
  64. CIPROFLOXACIN LACTATE [Suspect]
     Active Substance: CIPROFLOXACIN LACTATE
     Dosage: 500 MG; 1 DF
     Route: 065
  65. ESOMEPRAZOLE [Suspect]
     Active Substance: ESOMEPRAZOLE
     Dosage: 40 MG
     Route: 065
  66. Acetaminophen; Codeine phosphate [Concomitant]
     Route: 065
  67. MORPHINE SULFATE [Concomitant]
     Active Substance: MORPHINE SULFATE
     Route: 065
  68. TEVA-LENOLTEC NO 3 [Concomitant]
     Route: 065
  69. ALBUTEROL [Concomitant]
     Active Substance: ALBUTEROL
     Route: 065
  70. CEFUROXIME SODIUM [Concomitant]
     Active Substance: CEFUROXIME SODIUM
     Route: 065
  71. DANAZOL [Concomitant]
     Active Substance: DANAZOL
     Route: 065
  72. ACETAMINOPHEN\CODEINE PHOSPHATE [Concomitant]
     Active Substance: ACETAMINOPHEN\CODEINE PHOSPHATE
     Route: 065
  73. BUTYLSCOPOLAMINE BROMIDE [Suspect]
     Active Substance: BUTYLSCOPOLAMINE BROMIDE
     Dosage: 10 MILLIGRAM; 1 DF
     Route: 065
  74. RABEPRAZOLE [Suspect]
     Active Substance: RABEPRAZOLE
     Dosage: 2 DOSAGE FORM, BID
     Route: 065
  75. METOCLOPRAMIDE HYDROCHLORIDE [Suspect]
     Active Substance: METOCLOPRAMIDE HYDROCHLORIDE
     Dosage: 5 MILLIGRAM; 10 MG; UNKNOWN DOSE AND FREQUENCY
     Route: 065

REACTIONS (10)
  - Drug intolerance [Unknown]
  - Swollen tongue [Unknown]
  - Drug ineffective [Unknown]
  - Off label use [Unknown]
  - Drug ineffective for unapproved indication [Unknown]
  - Headache [Unknown]
  - Angioedema [Unknown]
  - Hypersensitivity [Unknown]
  - Dysphonia [Unknown]
  - Swelling face [Unknown]
